FAERS Safety Report 23250012 (Version 1)
Quarter: 2023Q4

REPORT INFORMATION
  Report Type: Report from Study
  Country: US (occurrence: US)
  Receive Date: 20231201
  Receipt Date: 20231201
  Transmission Date: 20240110
  Serious: Yes (Hospitalization, Other)
  Sender: FDA-Public Use
  Company Number: US-GILEAD-2023-0652826

PATIENT
  Age: 59 Year
  Sex: Female

DRUGS (40)
  1. AZTREONAM LYSINE [Suspect]
     Active Substance: AZTREONAM LYSINE
     Indication: Cystic fibrosis
     Dosage: INHALE ONE VIAL VIA NEBULIZER THREE TIMES DAILY FOR 28 DAYS ON THEN 28 DAYS OFF
     Route: 055
     Dates: start: 20230805
  2. ACID REDUCER [CIMETIDINE] [Concomitant]
  3. ADVAIR HFA [Concomitant]
     Active Substance: FLUTICASONE PROPIONATE\SALMETEROL XINAFOATE
  4. CODEINE [Concomitant]
     Active Substance: CODEINE
  5. BENTYL [Concomitant]
     Active Substance: DICYCLOMINE HYDROCHLORIDE
  6. BENZONATATE [Concomitant]
     Active Substance: BENZONATATE
  7. CALCIUM [Concomitant]
     Active Substance: CALCIUM
  8. CARAFATE [Concomitant]
     Active Substance: SUCRALFATE
  9. GLICLAZIDE [Concomitant]
     Active Substance: GLICLAZIDE
  10. CREON [Concomitant]
     Active Substance: PANCRELIPASE AMYLASE\PANCRELIPASE LIPASE\PANCRELIPASE PROTEASE
  11. CRESEMBA [Concomitant]
     Active Substance: ISAVUCONAZONIUM SULFATE
  12. CYCLOBENZAPRINE [Concomitant]
     Active Substance: CYCLOBENZAPRINE
  13. ELIQUIS [Concomitant]
     Active Substance: APIXABAN
  14. FAMOTIDINE [Concomitant]
     Active Substance: FAMOTIDINE
  15. MOMETASONE FUROATE [Concomitant]
     Active Substance: MOMETASONE FUROATE
  16. GUAIFENESIN [Concomitant]
     Active Substance: GUAIFENESIN
  17. LEVALBUTEROL [Concomitant]
     Active Substance: LEVALBUTEROL
  18. LEVAQUIN [Concomitant]
     Active Substance: LEVOFLOXACIN
  19. LORATADINE [Concomitant]
     Active Substance: LORATADINE
  20. MELATONIN [Concomitant]
     Active Substance: MELATONIN
  21. METAXALONE [Concomitant]
     Active Substance: METAXALONE
  22. MUCINEX [Concomitant]
     Active Substance: GUAIFENESIN
  23. OXYCODONE [Concomitant]
     Active Substance: OXYCODONE
  24. PANCREAZE [Concomitant]
     Active Substance: PANCRELIPASE AMYLASE\PANCRELIPASE LIPASE\PANCRELIPASE PROTEASE
  25. PANTOPRAZOLE [Concomitant]
     Active Substance: PANTOPRAZOLE
  26. PERCOCET [Concomitant]
     Active Substance: ACETAMINOPHEN\OXYCODONE HYDROCHLORIDE
  27. PREDNISONE [Concomitant]
     Active Substance: PREDNISONE
  28. PROCHLORPERAZINE [Concomitant]
     Active Substance: PROCHLORPERAZINE
  29. PULMOZYME [Concomitant]
     Active Substance: DORNASE ALFA
  30. SEROQUEL [Concomitant]
     Active Substance: QUETIAPINE FUMARATE
  31. SERTRALINE [Concomitant]
     Active Substance: SERTRALINE HYDROCHLORIDE
  32. SODIUM CHLORIDE [Concomitant]
     Active Substance: SODIUM CHLORIDE
  33. TOPAMAX [Concomitant]
     Active Substance: TOPIRAMATE
  34. TRAMADOL [Concomitant]
     Active Substance: TRAMADOL\TRAMADOL HYDROCHLORIDE
  35. TRAZODONE [Concomitant]
     Active Substance: TRAZODONE HYDROCHLORIDE
  36. TRIKAFTA [Concomitant]
     Active Substance: ELEXACAFTOR\IVACAFTOR\TEZACAFTOR
  37. URSODIOL [Concomitant]
     Active Substance: URSODIOL
  38. XIFAXAN [Concomitant]
     Active Substance: RIFAXIMIN
  39. ZOLOFT [Concomitant]
     Active Substance: SERTRALINE HYDROCHLORIDE
  40. BETHKIS [Concomitant]
     Active Substance: TOBRAMYCIN

REACTIONS (1)
  - Infective pulmonary exacerbation of cystic fibrosis [Unknown]
